FAERS Safety Report 7676994-8 (Version None)
Quarter: 2011Q3

REPORT INFORMATION
  Report Type: 
  Country: None (occurrence: None)
  Receive Date: 20110811
  Receipt Date: 20110805
  Transmission Date: 20111222
  Serious: Yes (Other)
  Sender: FDA-Public Use
  Company Number: DE-B.I. PHARMACEUTICALS,INC./RIDGEFIELD-2011-DE-04479DE

PATIENT
  Sex: Female
  Weight: 118 kg

DRUGS (10)
  1. SPIRONOLACTONE [Suspect]
     Dosage: 150 MG
     Route: 048
  2. METOPROLOL TARTRATE [Suspect]
     Dosage: 300 MG
     Route: 048
  3. VALDOXAN [Suspect]
     Dosage: 75 MG
     Route: 048
  4. CATAPRES [Suspect]
     Dosage: 0.225 MG
     Route: 048
  5. EXFORGE [Suspect]
     Dosage: 3 ANZ
     Route: 048
  6. HYDROCHLOROTHIAZIDE [Suspect]
     Dosage: 37.5 MG
     Route: 048
  7. IBUPROFEN [Suspect]
     Dosage: 3600 MG
     Route: 048
  8. VENLAFAXINE HYDROCHLORIDE [Suspect]
     Dosage: 450 MG
     Route: 048
  9. DOMINAL [Suspect]
     Dosage: 240 MG
     Route: 048
  10. TRAMADOL HCL [Suspect]
     Dosage: 300 MG
     Route: 048

REACTIONS (3)
  - SUICIDE ATTEMPT [None]
  - SOMNOLENCE [None]
  - BRADYCARDIA [None]
